FAERS Safety Report 8554916-5 (Version None)
Quarter: 2012Q3

REPORT INFORMATION
  Report Type: 
  Country: None (occurrence: None)
  Receive Date: 20120725
  Receipt Date: 20120725
  Transmission Date: 20120928
  Serious: Yes (Life-Threatening)
  Sender: FDA-Public Use
  Company Number: None

PATIENT
  Sex: Female
  Weight: 102.0593 kg

DRUGS (2)
  1. ALBUTEROL SULFATE AUTOHALER [Suspect]
  2. ALBUTEROL SULFATE AUTOHALER [Suspect]
     Indication: ASTHMA
     Dosage: 2 PUFFS 4 TIMES A DAY
     Dates: start: 20120201, end: 20120720

REACTIONS (2)
  - DYSPNOEA [None]
  - DEVICE FAILURE [None]
